FAERS Safety Report 15406370 (Version 1)
Quarter: 2018Q3

REPORT INFORMATION
  Report Type: Spontaneous
  Country: TR (occurrence: TR)
  Receive Date: 20180920
  Receipt Date: 20180920
  Transmission Date: 20181010
  Serious: Yes (Other)
  Sender: FDA-Public Use
  Company Number: PHHY2018TR096759

PATIENT
  Age: 75 Year
  Sex: Female

DRUGS (2)
  1. ALLOPURINOL. [Suspect]
     Active Substance: ALLOPURINOL
     Indication: ACUTE MYELOID LEUKAEMIA
     Dosage: 300 MG, QD
     Route: 065
  2. HYDROXYUREA. [Suspect]
     Active Substance: HYDROXYUREA
     Indication: ACUTE MYELOID LEUKAEMIA
     Dosage: 100 MG, QD
     Route: 065

REACTIONS (7)
  - Oedema peripheral [Unknown]
  - Skin plaque [Recovering/Resolving]
  - Erythema [Recovering/Resolving]
  - Skin wound [Unknown]
  - Wound complication [Unknown]
  - Leukaemia cutis [Unknown]
  - Product use in unapproved indication [Unknown]
